FAERS Safety Report 7829742-2 (Version None)
Quarter: 2011Q4

REPORT INFORMATION
  Report Type: 
  Country: None (occurrence: None)
  Receive Date: 20111018
  Receipt Date: 20111003
  Transmission Date: 20120403
  Serious: Yes (Hospitalization, Other)
  Sender: FDA-Public Use
  Company Number: 2007S1002883

PATIENT
  Age: 63 Year
  Sex: Female
  Weight: 74.3899 kg

DRUGS (16)
  1. HYZAAR [Concomitant]
  2. NORVASC [Concomitant]
  3. IMDUR [Concomitant]
  4. ASPIRIN [Concomitant]
  5. VITAMIN D [Concomitant]
  6. SODIUM PHOSPHATE MONOBASIC MONOHYDRATE AND NAPO4 DIBASIC ANHYDROUS [Suspect]
     Indication: COLONOSCOPY
     Dosage: 90 ML;TOTAL;PO
     Route: 048
     Dates: start: 20030420, end: 20030420
  7. MIRALAX /00754501/ [Concomitant]
  8. FOLIC ACID [Concomitant]
  9. VITAMIN E /00110501/ [Concomitant]
  10. ROSUVASTATIN [Concomitant]
  11. CALCIUM CARBONATE [Concomitant]
  12. PREVACID [Concomitant]
  13. COZAAR [Concomitant]
  14. ALPRAZOLAM [Concomitant]
  15. INSULIN [Concomitant]
  16. ACTONEL [Concomitant]

REACTIONS (20)
  - DYSPHAGIA [None]
  - DEHYDRATION [None]
  - TOXICITY TO VARIOUS AGENTS [None]
  - OBSTRUCTION [None]
  - IMPAIRED WORK ABILITY [None]
  - INFLUENZA LIKE ILLNESS [None]
  - ANAEMIA [None]
  - PAIN [None]
  - HYPOVOLAEMIA [None]
  - RENAL TUBULAR NECROSIS [None]
  - RENAL VESSEL DISORDER [None]
  - RENAL FAILURE CHRONIC [None]
  - ANXIETY [None]
  - ABDOMINAL PAIN UPPER [None]
  - HYPOTENSION [None]
  - HYPOPHAGIA [None]
  - DEPRESSION [None]
  - PYREXIA [None]
  - RENAL FAILURE ACUTE [None]
  - CHEST PAIN [None]
